FAERS Safety Report 20126790 (Version 1)
Quarter: 2021Q4

REPORT INFORMATION
  Report Type: Spontaneous
  Country: US (occurrence: None)
  Receive Date: 20211128
  Receipt Date: 20211128
  Transmission Date: 20220303
  Serious: Yes (Other)
  Sender: FDA-Public Use
  Company Number: None

PATIENT
  Age: 48 Year
  Sex: Female
  Weight: 67.5 kg

DRUGS (1)
  1. NEUTROGENA COOLDRY SPORT SUNSCREEN BROAD SPECTRUM SPF100 [Suspect]
     Active Substance: AVOBENZONE\HOMOSALATE\OCTISALATE\OCTOCRYLENE\OXYBENZONE
     Indication: Prophylaxis against solar radiation
     Dosage: OTHER QUANTITY : 141 SPRAY(S);?FREQUENCY : AS NEEDED;?
     Route: 061
     Dates: start: 20190703, end: 20200430

REACTIONS (3)
  - Rash [None]
  - Scar [None]
  - Skin disorder [None]

NARRATIVE: CASE EVENT DATE: 20190703
